FAERS Safety Report 11199267 (Version 1)
Quarter: 2015Q2

REPORT INFORMATION
  Report Type: Spontaneous
  Country: US (occurrence: None)
  Receive Date: 20150617
  Receipt Date: 20150617
  Transmission Date: 20150821
  Serious: Yes (Hospitalization)
  Sender: FDA-Public Use
  Company Number: None

PATIENT
  Age: 65 Year
  Sex: Male
  Weight: 120.6 kg

DRUGS (3)
  1. CYTARABINE. [Suspect]
     Active Substance: CYTARABINE
     Dates: end: 20150303
  2. PRAVASTATIN SODIUM. [Suspect]
     Active Substance: PRAVASTATIN SODIUM
     Dates: end: 20150304
  3. IDARUBICIN [Suspect]
     Active Substance: IDARUBICIN
     Dates: end: 20150302

REACTIONS (11)
  - Procedural complication [None]
  - Acute pulmonary oedema [None]
  - Biopsy bone marrow abnormal [None]
  - Mental status changes [None]
  - Platelet count decreased [None]
  - Pyrexia [None]
  - Hypotension [None]
  - Septic shock [None]
  - Haemoglobin decreased [None]
  - Cardiogenic shock [None]
  - White blood cell count decreased [None]

NARRATIVE: CASE EVENT DATE: 20150318
